FAERS Safety Report 6715355-2 (Version None)
Quarter: 2010Q2

REPORT INFORMATION
  Report Type: 
  Country: None (occurrence: None)
  Receive Date: 20100507
  Receipt Date: 20100429
  Transmission Date: 20101027
  Serious: Yes (Other)
  Sender: FDA-Public Use
  Company Number: GB-BRISTOL-MYERS SQUIBB COMPANY-15092430

PATIENT
  Sex: Female

DRUGS (5)
  1. EFAVIRENZ CAPS [Suspect]
     Indication: ANTIRETROVIRAL THERAPY
     Route: 048
     Dates: start: 20021001
  2. ABACAVIR SULFATE AND LAMIVUDINE [Suspect]
     Indication: ANTIRETROVIRAL THERAPY
     Dates: start: 20070101
  3. LAMIVUDINE + ZIDOVUDINE [Suspect]
     Indication: ANTIRETROVIRAL THERAPY
     Dates: start: 20070801
  4. LOPINAVIR AND RITONAVIR [Suspect]
     Indication: ANTIRETROVIRAL THERAPY
     Dates: start: 20070920
  5. NEVIRAPINE [Suspect]
     Indication: ANTIRETROVIRAL THERAPY
     Dates: start: 20070816

REACTIONS (2)
  - ABORTION INDUCED [None]
  - PREGNANCY [None]
